FAERS Safety Report 6322560-6 (Version None)
Quarter: 2009Q3

REPORT INFORMATION
  Report Type: 
  Country: None (occurrence: None)
  Receive Date: 20090824
  Receipt Date: 20090226
  Transmission Date: 20100115
  Serious: No
  Sender: FDA-Public Use
  Company Number: US-ABBOTT-09P-163-0559809-00

PATIENT
  Sex: Male

DRUGS (11)
  1. NIASPAN [Suspect]
     Indication: BLOOD CHOLESTEROL ABNORMAL
     Dates: start: 20080101
  2. NIASPAN [Suspect]
     Dates: end: 20090221
  3. SIMCOR [Suspect]
     Indication: BLOOD CHOLESTEROL ABNORMAL
     Dosage: 500/20 MG EVERY NIGHT
     Dates: start: 20090221
  4. ASPIRIN [Concomitant]
     Indication: DRUG USE FOR UNKNOWN INDICATION
  5. DEPO [Concomitant]
     Indication: DRUG USE FOR UNKNOWN INDICATION
  6. CIALIS [Concomitant]
     Indication: DRUG USE FOR UNKNOWN INDICATION
  7. AVODART [Concomitant]
     Indication: DRUG USE FOR UNKNOWN INDICATION
     Dates: start: 20090201
  8. ZEGRIC [Concomitant]
     Indication: DRUG USE FOR UNKNOWN INDICATION
  9. DIOVAN HCT [Concomitant]
     Indication: DRUG USE FOR UNKNOWN INDICATION
  10. NE DECONGESTANT [Concomitant]
     Indication: DRUG USE FOR UNKNOWN INDICATION
     Dosage: THIS MORNING
  11. TYLENOL [Concomitant]
     Indication: DRUG USE FOR UNKNOWN INDICATION
     Dosage: AFTER MIDNIGHT LAST NIGHT

REACTIONS (5)
  - NASAL CONGESTION [None]
  - POOR QUALITY SLEEP [None]
  - PRURITUS [None]
  - RHINORRHOEA [None]
  - SINUS CONGESTION [None]
